FAERS Safety Report 9994192 (Version 1)
Quarter: 2014Q1

REPORT INFORMATION
  Report Type: Spontaneous
  Country: US (occurrence: US)
  Receive Date: 20140310
  Receipt Date: 20140310
  Transmission Date: 20141002
  Serious: Yes (Hospitalization)
  Sender: FDA-Public Use
  Company Number: US-BAXTER-2014BAX011057

PATIENT
  Age: 50 Year
  Sex: Male

DRUGS (6)
  1. DIANEAL LOW CALCIUM [Suspect]
     Indication: RENAL FAILURE CHRONIC
     Route: 033
     Dates: start: 2009
  2. DIANEAL LOW CALCIUM [Suspect]
     Dosage: 1 BAG
  3. DIANEAL LOW CALCIUM [Suspect]
  4. DIANEAL LOW CALCIUM [Suspect]
     Indication: RENAL FAILURE CHRONIC
     Route: 033
     Dates: start: 2009
  5. DIANEAL LOW CALCIUM [Suspect]
     Dosage: 1 BAG
  6. DIANEAL LOW CALCIUM [Suspect]

REACTIONS (1)
  - Dysphagia [Recovering/Resolving]
